FAERS Safety Report 6696115-8 (Version None)
Quarter: 2010Q2

REPORT INFORMATION
  Report Type: 
  Country: None (occurrence: None)
  Receive Date: 20100426
  Receipt Date: 20100419
  Transmission Date: 20101027
  Serious: Yes (Hospitalization, Other)
  Sender: FDA-Public Use
  Company Number: US-TYCO HEALTHCARE/MALLINCKRODT-T200901392

PATIENT
  Sex: Male
  Weight: 78.912 kg

DRUGS (15)
  1. OPTIMARK [Suspect]
     Indication: NUCLEAR MAGNETIC RESONANCE IMAGING
     Dosage: 20 ML, SINGLE
     Dates: start: 20041014, end: 20041014
  2. OPTIMARK [Suspect]
     Dosage: 15 ML , SINGLE
     Dates: start: 20051017, end: 20051017
  3. MAGNEVIST [Suspect]
     Indication: NUCLEAR MAGNETIC RESONANCE IMAGING
     Dosage: 15 ML, SINGLE
     Dates: start: 19990624, end: 19990624
  4. MAGNEVIST [Suspect]
     Dosage: UNK
     Dates: start: 20020828, end: 20020828
  5. MAGNEVIST [Suspect]
     Dosage: UNK
     Dates: start: 20020903, end: 20020903
  6. MAGNEVIST [Suspect]
     Dosage: UNK
     Dates: start: 20020927, end: 20020927
  7. MAGNEVIST [Suspect]
     Dosage: UNK
     Dates: start: 20021230, end: 20021230
  8. ALPRAZOLAM [Concomitant]
     Dosage: 0.5 MG,1 TABLET HS  PRN
  9. ZITHROMAX [Concomitant]
     Dosage: 500 MG, TRI-PAK
  10. OXYCODONE [Concomitant]
     Dosage: 5 MG, 1 TABLET EVERY 4-6 HRS PRN
  11. SULFAMETHOXAZOLE AND TRIMETHOPRIM [Concomitant]
     Dosage: 800/160 MGS 1 TABLET BID X 14 DAYS
  12. METRONIDAZOLE [Concomitant]
     Dosage: 500 MG, 1 TABLET TID X 10 DAYS
  13. CIPROFLOXACIN [Concomitant]
     Dosage: 500 MG, 1 TABLET TID X 10 DAYS
  14. ACETAMINOPHEN AND HYDROCODONE BITARTRATE [Concomitant]
     Dosage: 5/500 MGS, 1-2 TABLETS EVERY 6 HRS PRN
  15. HYDROCHLOROTHIAZIDE [Concomitant]
     Dosage: 25 MG, 1 TABLET DAILY

REACTIONS (32)
  - ACTIVITIES OF DAILY LIVING IMPAIRED [None]
  - ANAPHYLACTIC SHOCK [None]
  - ANXIETY [None]
  - CARDIAC FAILURE CONGESTIVE [None]
  - CLAVICLE FRACTURE [None]
  - CONJUNCTIVITIS [None]
  - CONSTIPATION [None]
  - COUGH [None]
  - DEPRESSION [None]
  - DRUG HYPERSENSITIVITY [None]
  - DRUG PRESCRIBING ERROR [None]
  - FALL [None]
  - FUNGAL INFECTION [None]
  - GAIT DISTURBANCE [None]
  - HYPOKALAEMIA [None]
  - INSOMNIA [None]
  - INTERSTITIAL LUNG DISEASE [None]
  - LEFT ATRIAL DILATATION [None]
  - LEFT VENTRICULAR HYPERTROPHY [None]
  - LEUKOCYTOSIS [None]
  - MELANOSIS COLI [None]
  - MUSCLE SPASMS [None]
  - NEPHROGENIC SYSTEMIC FIBROSIS [None]
  - NIGHT SWEATS [None]
  - POLYP [None]
  - PULMONARY VALVE INCOMPETENCE [None]
  - RENAL FAILURE ACUTE [None]
  - RHINITIS ALLERGIC [None]
  - SENSORY LOSS [None]
  - SINUSITIS [None]
  - TRICUSPID VALVE INCOMPETENCE [None]
  - VERTIGO [None]
